FAERS Safety Report 11721928 (Version 1)
Quarter: 2015Q4

REPORT INFORMATION
  Report Type: Spontaneous
  Country: US (occurrence: US)
  Receive Date: 20151111
  Receipt Date: 20151111
  Transmission Date: 20160304
  Serious: No
  Sender: FDA-Public Use
  Company Number: US-JNJFOC-20151015754

PATIENT
  Sex: Female

DRUGS (2)
  1. XARELTO [Suspect]
     Active Substance: RIVAROXABAN
     Indication: DEEP VEIN THROMBOSIS
     Route: 048
  2. NADOLOL. [Concomitant]
     Active Substance: NADOLOL
     Indication: CARDIAC DISORDER
     Route: 065

REACTIONS (4)
  - Heart rate increased [Unknown]
  - Adverse drug reaction [Unknown]
  - Fatigue [Unknown]
  - Gastrooesophageal reflux disease [Unknown]
